FAERS Safety Report 10444883 (Version 2)
Quarter: 2014Q3

REPORT INFORMATION
  Report Type: Spontaneous
  Country: US (occurrence: US)
  Receive Date: 20140910
  Receipt Date: 20140910
  Transmission Date: 20150326
  Serious: Yes (Hospitalization)
  Sender: FDA-Public Use
  Company Number: US-ACTELION-A-US2014-104175

PATIENT
  Age: 8 Year
  Sex: Female

DRUGS (4)
  1. REVATIO [Concomitant]
     Active Substance: SILDENAFIL CITRATE
  2. LETAIRIS [Concomitant]
     Active Substance: AMBRISENTAN
  3. VELETRI [Suspect]
     Active Substance: EPOPROSTENOL
     Indication: PULMONARY ARTERIAL HYPERTENSION
     Dosage: 20 NG/KG, PER MIN
     Route: 042
     Dates: start: 20140404
  4. COUMADIN [Concomitant]
     Active Substance: WARFARIN SODIUM

REACTIONS (8)
  - Pseudomonas test positive [Recovered/Resolved]
  - Catheter site discharge [Recovered/Resolved]
  - Catheter site erythema [Recovered/Resolved]
  - Catheter site pain [Recovered/Resolved]
  - Catheter culture positive [Recovered/Resolved]
  - Catheter site swelling [Recovered/Resolved]
  - Catheter site infection [Recovered/Resolved]
  - Catheter site discolouration [Recovered/Resolved]

NARRATIVE: CASE EVENT DATE: 20140814
